FAERS Safety Report 7690756-7 (Version None)
Quarter: 2011Q3

REPORT INFORMATION
  Report Type: 
  Country: None (occurrence: None)
  Receive Date: 20110817
  Receipt Date: 20110817
  Transmission Date: 20111222
  Serious: Yes (Hospitalization)
  Sender: FDA-Public Use
  Company Number: None

PATIENT
  Sex: Male

DRUGS (2)
  1. NEUPOGEN [Suspect]
     Dosage: 300MCG BIW SQ
     Route: 058
     Dates: start: 20110614, end: 20110801
  2. PEGASYS [Suspect]
     Indication: HEPATITIS C
     Dosage: 180MCG QWK SQ
     Route: 058
     Dates: start: 20110505, end: 20110718

REACTIONS (2)
  - HOSPITALISATION [None]
  - UNEVALUABLE EVENT [None]
